FAERS Safety Report 4952812-3 (Version None)
Quarter: 2006Q1

REPORT INFORMATION
  Report Type: 
  Country: None (occurrence: None)
  Receive Date: 20060320
  Receipt Date: 20060313
  Transmission Date: 20060701
  Serious: Yes (Other)
  Sender: FDA-Public Use
  Company Number: 2006035294

PATIENT
  Age: 70 Year
  Sex: Female
  Weight: 81.6475 kg

DRUGS (3)
  1. LIPITOR [Suspect]
     Indication: BLOOD CHOLESTEROL INCREASED
     Dates: start: 19990330, end: 20060227
  2. GLUCOPHAGE [Concomitant]
  3. ADVIL [Concomitant]

REACTIONS (9)
  - AORTIC ARTERIOSCLEROSIS [None]
  - BACK PAIN [None]
  - CARDIAC FAILURE CONGESTIVE [None]
  - FEELING HOT [None]
  - HYPOAESTHESIA [None]
  - INSOMNIA [None]
  - NASOPHARYNGITIS [None]
  - PAIN IN EXTREMITY [None]
  - VENTRICULAR TACHYCARDIA [None]
